FAERS Safety Report 13557119 (Version 2)
Quarter: 2017Q3

REPORT INFORMATION
  Report Type: Report from Study
  Country: US (occurrence: US)
  Receive Date: 20170517
  Receipt Date: 20170814
  Transmission Date: 20171127
  Serious: No
  Sender: FDA-Public Use
  Company Number: US-ACADIA PHARMACEUTICALS INC.-ACA-2017-002777

PATIENT
  Age: 69 Year
  Sex: Male

DRUGS (2)
  1. NUPLAZID [Suspect]
     Active Substance: PIMAVANSERIN TARTRATE
     Indication: PARKINSON^S DISEASE
     Dosage: 51 MG, QD
     Route: 048
     Dates: start: 20161115
  2. NUPLAZID [Suspect]
     Active Substance: PIMAVANSERIN TARTRATE
     Dosage: 34 MG, QD
     Route: 048

REACTIONS (6)
  - Abdominal discomfort [Unknown]
  - Heart rate increased [Unknown]
  - Tremor [Unknown]
  - Drug ineffective [Unknown]
  - Dyspnoea [Unknown]
  - Drug prescribing error [Unknown]

NARRATIVE: CASE EVENT DATE: 20170323
